FAERS Safety Report 5609796-4 (Version None)
Quarter: 2008Q1

REPORT INFORMATION
  Report Type: 
  Country: None (occurrence: None)
  Receive Date: 20080131
  Receipt Date: 20071025
  Transmission Date: 20080703
  Serious: No
  Sender: FDA-Public Use
  Company Number: US-BAYER-200713502BCC

PATIENT
  Age: 26 Year
  Sex: Female
  Weight: 57 kg

DRUGS (2)
  1. ALEVE COLD AND SINUS [Suspect]
     Indication: DRUG USE FOR UNKNOWN INDICATION
     Route: 048
     Dates: start: 20071025
  2. VICODIN [Concomitant]
     Indication: ENDODONTIC PROCEDURE

REACTIONS (1)
  - UNEVALUABLE EVENT [None]
